FAERS Safety Report 8121760-2 (Version None)
Quarter: 2012Q1

REPORT INFORMATION
  Report Type: 
  Country: None (occurrence: None)
  Receive Date: 20120207
  Receipt Date: 20120207
  Transmission Date: 20120608
  Serious: No
  Sender: FDA-Public Use
  Company Number: None

PATIENT
  Sex: Female
  Weight: 49.8957 kg

DRUGS (1)
  1. ENABLEX [Suspect]
     Dosage: 7.5 IT DAILY
     Dates: start: 20120116

REACTIONS (2)
  - DYSSTASIA [None]
  - DIZZINESS [None]
